FAERS Safety Report 22080094 (Version 3)
Quarter: 2023Q1

REPORT INFORMATION
  Report Type: Report from Study
  Country: US (occurrence: US)
  Receive Date: 20230309
  Receipt Date: 20230324
  Transmission Date: 20230418
  Serious: Yes (Hospitalization, Other)
  Sender: FDA-Public Use
  Company Number: US-JAZZ PHARMACEUTICALS-2023-US-005301

PATIENT
  Age: 10 Year
  Sex: Male

DRUGS (8)
  1. EPIDIOLEX [Suspect]
     Active Substance: CANNABIDIOL
     Indication: Severe myoclonic epilepsy of infancy
     Dosage: 4 MILLILITER, BID
     Route: 048
  2. EPIDIOLEX [Suspect]
     Active Substance: CANNABIDIOL
     Dosage: 4 MILLILITER, BID
     Route: 048
  3. CLOBAZAM [Concomitant]
     Active Substance: CLOBAZAM
  4. BRIVIACT [Concomitant]
     Active Substance: BRIVARACETAM
     Dosage: UNK
  5. BRIVIACT [Concomitant]
     Active Substance: BRIVARACETAM
     Dosage: UNK
  6. BRIVIACT [Concomitant]
     Active Substance: BRIVARACETAM
     Dosage: UNK
  7. BRIVIACT [Concomitant]
     Active Substance: BRIVARACETAM
     Dosage: UNK
  8. VALPROIC ACID [Concomitant]
     Active Substance: VALPROIC ACID

REACTIONS (3)
  - Seizure [Unknown]
  - Gait disturbance [Unknown]
  - Product administration interrupted [Unknown]

NARRATIVE: CASE EVENT DATE: 20230314
